FAERS Safety Report 5847881-2 (Version None)
Quarter: 2008Q3

REPORT INFORMATION
  Report Type: 
  Country: None (occurrence: None)
  Receive Date: 20080818
  Receipt Date: 20080808
  Transmission Date: 20090109
  Serious: Yes (Other)
  Sender: FDA-Public Use
  Company Number: CH-BAYER-200823497GPV

PATIENT
  Age: 25 Year
  Sex: Female

DRUGS (2)
  1. BETAFERON [Suspect]
     Indication: DRUG USE FOR UNKNOWN INDICATION
     Route: 058
     Dates: start: 20080301
  2. LIORESAL [Concomitant]

REACTIONS (1)
  - MUSCLE SPASTICITY [None]
